FAERS Safety Report 25790016 (Version 2)
Quarter: 2025Q3

REPORT INFORMATION
  Report Type: Spontaneous
  Country: US (occurrence: US)
  Receive Date: 20250911
  Receipt Date: 20250913
  Transmission Date: 20251020
  Serious: No
  Sender: ALEXION PHARMACEUTICALS
  Company Number: US-AstraZeneca-CH-00945842A

PATIENT

DRUGS (2)
  1. FASENRA [Suspect]
     Active Substance: BENRALIZUMAB
     Indication: Asthma
     Dosage: 30 MILLIGRAM, Q4W
     Route: 065
  2. FASENRA [Suspect]
     Active Substance: BENRALIZUMAB
     Indication: Cough

REACTIONS (6)
  - Incorrect dose administered by device [Unknown]
  - Injection site pain [Unknown]
  - Off label use [Unknown]
  - Product dose omission issue [Unknown]
  - Device use issue [Unknown]
  - Injection site discharge [Unknown]
